FAERS Safety Report 5318488-0 (Version None)
Quarter: 2007Q2

REPORT INFORMATION
  Report Type: 
  Country: None (occurrence: None)
  Receive Date: 20070501
  Receipt Date: 20070420
  Transmission Date: 20071010
  Serious: Yes (Hospitalization)
  Sender: FDA-Public Use
  Company Number: GXKR2007GB03604

PATIENT
  Age: 35 Year
  Sex: Female

DRUGS (2)
  1. ASPIRIN [Suspect]
     Indication: ANTICOAGULANT THERAPY
     Dosage: UNK, UNK, ORAL
     Route: 048
  2. WARFARIN SODIUM [Suspect]
     Indication: ANTICOAGULANT THERAPY
     Dosage: UNK, UNK, ORAL
     Route: 048

REACTIONS (7)
  - GAMMA-GLUTAMYLTRANSFERASE INCREASED [None]
  - GASTRIC HAEMORRHAGE [None]
  - GASTRIC VARICES HAEMORRHAGE [None]
  - NODULAR REGENERATIVE HYPERPLASIA [None]
  - PORTAL HYPERTENSION [None]
  - SPLENOMEGALY [None]
  - THROMBOCYTOPENIA [None]
